FAERS Safety Report 10726314 (Version 1)
Quarter: 2015Q1

REPORT INFORMATION
  Report Type: Spontaneous
  Country: HR (occurrence: HR)
  Receive Date: 20150121
  Receipt Date: 20150121
  Transmission Date: 20150721
  Serious: Yes (Hospitalization)
  Sender: FDA-Public Use
  Company Number: PHHY2015HR004400

PATIENT
  Age: 63 Year
  Sex: Female
  Weight: 64 kg

DRUGS (5)
  1. FLUOROURACIL PLIVA [Concomitant]
     Active Substance: FLUOROURACIL
     Dosage: 3240 MG, UNK
     Route: 041
     Dates: start: 20140503, end: 20140504
  2. FLUOROURACIL PLIVA [Concomitant]
     Active Substance: FLUOROURACIL
     Indication: COLON CANCER
     Dosage: 540 MG, UNK
     Route: 041
     Dates: start: 20140503, end: 20140503
  3. ERBITUX [Suspect]
     Active Substance: CETUXIMAB
     Indication: COLON CANCER
     Dosage: 340 MG, UNK
     Route: 041
     Dates: start: 20140503, end: 20140503
  4. CAMPTO [Suspect]
     Active Substance: IRINOTECAN
     Indication: COLON CANCER
     Dosage: 240 MG, UNK
     Route: 041
     Dates: start: 20140503, end: 20140503
  5. CALCIUM FOLINATE [Suspect]
     Active Substance: LEUCOVORIN CALCIUM
     Indication: COLON CANCER
     Dosage: 540 MG, UNK
     Route: 041
     Dates: start: 20140503, end: 20140503

REACTIONS (5)
  - Rash pustular [Recovered/Resolved]
  - Rash maculo-papular [Recovered/Resolved]
  - Oral herpes [Recovered/Resolved]
  - Aphthous stomatitis [Recovered/Resolved]
  - Body temperature increased [Recovered/Resolved]

NARRATIVE: CASE EVENT DATE: 20140519
